FAERS Safety Report 7334409-3 (Version None)
Quarter: 2011Q1

REPORT INFORMATION
  Report Type: 
  Country: None (occurrence: None)
  Receive Date: 20110307
  Receipt Date: 20110223
  Transmission Date: 20110831
  Serious: Yes (Hospitalization, Other)
  Sender: FDA-Public Use
  Company Number: PHHY2011TW15558

PATIENT
  Sex: Male
  Weight: 79 kg

DRUGS (1)
  1. ALISKIREN [Suspect]
     Indication: HYPERTENSION
     Dosage: 150 MG, UNK
     Route: 048
     Dates: start: 20100918

REACTIONS (3)
  - HAEMATEMESIS [None]
  - GASTRIC ULCER HAEMORRHAGE [None]
  - MELAENA [None]
